FAERS Safety Report 4433344-8 (Version None)
Quarter: 2004Q3

REPORT INFORMATION
  Report Type: 
  Country: None (occurrence: None)
  Receive Date: 20040820
  Receipt Date: 20040806
  Transmission Date: 20050211
  Serious: Yes (Congenital Anomaly)
  Sender: FDA-Public Use
  Company Number: B0342473A

PATIENT

DRUGS (5)
  1. EPIVIR [Suspect]
     Dosage: TRANSPLACENTARY
     Route: 064
  2. SEPTRA [Suspect]
     Dosage: TRANSPLACENTARY
     Route: 064
  3. DARAPRIM [Suspect]
     Dosage: TRANSPLACENTARY
     Route: 064
  4. STAVUDINE (STAVUDINE) [Suspect]
     Dosage: TRANSPLACENTARY
     Route: 064
  5. DAPSONE [Concomitant]

REACTIONS (2)
  - DRUG EXPOSURE DURING PREGNANCY [None]
  - EXOMPHALOS [None]
